FAERS Safety Report 7637264-7 (Version None)
Quarter: 2011Q3

REPORT INFORMATION
  Report Type: 
  Country: None (occurrence: None)
  Receive Date: 20110726
  Receipt Date: 20110720
  Transmission Date: 20111222
  Serious: Yes (Hospitalization, Other)
  Sender: FDA-Public Use
  Company Number: US-PFIZER INC-2011111781

PATIENT
  Sex: Female

DRUGS (4)
  1. KLONOPIN [Concomitant]
     Indication: ANXIETY
     Dosage: UNK,
     Dates: start: 19871101
  2. CHANTIX [Suspect]
     Indication: SMOKING CESSATION THERAPY
     Dosage: 1 MG, UNK
     Dates: start: 20090201
  3. CHANTIX [Suspect]
     Dosage: 1 MG, UNK
     Dates: start: 20090909, end: 20100301
  4. TOFRANIL [Concomitant]
     Indication: PANIC ATTACK
     Dosage: UNK,
     Dates: start: 19871101

REACTIONS (7)
  - SUICIDE ATTEMPT [None]
  - EMOTIONAL DISTRESS [None]
  - ANXIETY [None]
  - DEPRESSION [None]
  - MENTAL DISORDER [None]
  - INTENTIONAL OVERDOSE [None]
  - IMPAIRED DRIVING ABILITY [None]
